FAERS Safety Report 8030358-6 (Version None)
Quarter: 2011Q4

REPORT INFORMATION
  Report Type: 
  Country: None (occurrence: None)
  Receive Date: 20111130
  Receipt Date: 20110615
  Transmission Date: 20120403
  Serious: Yes (Hospitalization, Other)
  Sender: FDA-Public Use
  Company Number: US200812002413

PATIENT
  Age: 53 Year
  Sex: Female
  Weight: 75.3 kg

DRUGS (45)
  1. LOPID [Concomitant]
  2. OXYCODONE W/PARACETAMOL (OXYCODONE, PARACETAMOL) [Concomitant]
  3. SUMATRIPTAN SUCCINATE (IMITREX) [Concomitant]
  4. TRICOR [Concomitant]
  5. NORTRIPTYLINE /00006502/ (NORTRIPTYLINE HYDROCHLORIDE) [Concomitant]
  6. PRAVACHOL [Concomitant]
  7. PLAVIX [Concomitant]
  8. AVANDAMET (METFORMIN HYDROCHLORIDE, ROSIGLITAZONE MALEATE) [Concomitant]
  9. LEXAPRO [Concomitant]
  10. AMITRIPTYLINE HCL [Concomitant]
  11. HYDROMORPHONE HCL [Concomitant]
  12. EXENATIDE UNKNOWN STRENGTH PEN, DISPOSABLE DEVICE (EXENATIDE PEN (UNKN [Concomitant]
  13. XANAX [Concomitant]
  14. LONOX (ATROPINE SULFATE, DIPHENOXYLATE HYDROCHLORIDE) [Concomitant]
  15. INDOMETHACIN [Concomitant]
  16. LISINOPRIL HYDROCHLOROTHIAZID (HYDROCHLOROTHIAZIDE, LISINOPRIL) [Concomitant]
  17. SEROQUEL [Concomitant]
  18. STARLIX [Concomitant]
  19. VITAMIN D NOS (VITAMIN D NOS) [Concomitant]
  20. PIOGLITAZONE [Concomitant]
  21. TRAMADOL HCL [Concomitant]
  22. RANITIDINE HYDROCHLORIDE [Concomitant]
  23. HYZAAR [Concomitant]
  24. FLONASE [Concomitant]
  25. ATENOLOL [Concomitant]
  26. IBUPROFEN [Concomitant]
  27. HYDROXYZINE [Concomitant]
  28. TOPROL-XL [Concomitant]
  29. NAPROXEN [Concomitant]
  30. EXENATIDE 5MCG PEN, DISPOSABLE DEVICE (EXENATIDE PEN (5MCG)) PEN,DISPO [Concomitant]
  31. FLEXERIL [Concomitant]
  32. METFORMIN HCL [Concomitant]
  33. PEXEVA (PAROXETINE MESILATE) [Concomitant]
  34. WELLBUTRIN XL [Concomitant]
  35. AMLODIPINE W/BENAZEPRIL (AMLODIPINE, BENAZAPRIL) [Concomitant]
  36. HYDROCHLOROTHIAZIDE [Concomitant]
  37. LASIX [Concomitant]
  38. BYETTA [Suspect]
  39. FLECTOR [Concomitant]
  40. OTHER CHOLESTEROL AND TRIGLYCERIDES REDUCERS [Concomitant]
  41. LOSARTAN POTASSIUM [Concomitant]
  42. NEURONTIN [Concomitant]
  43. EFFEXOR XR [Concomitant]
  44. PERCOCET [Concomitant]
  45. AVANDIA [Concomitant]

REACTIONS (6)
  - PANCREATITIS [None]
  - NAUSEA [None]
  - ABDOMINAL DISTENSION [None]
  - DIARRHOEA [None]
  - VOMITING [None]
  - POLYMYALGIA RHEUMATICA [None]
